FAERS Safety Report 19756874 (Version 2)
Quarter: 2021Q3

REPORT INFORMATION
  Report Type: Report from Study
  Country: DE (occurrence: DE)
  Receive Date: 20210827
  Receipt Date: 20210913
  Transmission Date: 20211014
  Serious: No
  Sender: FDA-Public Use
  Company Number: DE-TAKEDA-2021TUS045570

PATIENT

DRUGS (3)
  1. PARATHYROID HORMONE [Suspect]
     Active Substance: PARATHYROID HORMONE
     Indication: HYPOPARATHYROIDISM
     Dosage: UNK
     Route: 065
  2. PARATHYROID HORMONE [Suspect]
     Active Substance: PARATHYROID HORMONE
     Indication: HYPOPARATHYROIDISM
     Dosage: UNK
     Route: 065
  3. PARATHYROID HORMONE [Suspect]
     Active Substance: PARATHYROID HORMONE
     Indication: HYPOPARATHYROIDISM
     Dosage: UNK
     Route: 065

REACTIONS (2)
  - Tetany [Not Recovered/Not Resolved]
  - Hypocalcaemia [Recovering/Resolving]

NARRATIVE: CASE EVENT DATE: 20210715
